FAERS Safety Report 4488466-2 (Version None)
Quarter: 2004Q4

REPORT INFORMATION
  Report Type: 
  Country: None (occurrence: None)
  Receive Date: 20041026
  Receipt Date: 20041012
  Transmission Date: 20050328
  Serious: Yes (Other)
  Sender: FDA-Public Use
  Company Number: 2004238531US

PATIENT
  Age: 51 Year
  Sex: Male

DRUGS (1)
  1. SOLU-MEDROL [Suspect]
     Indication: SPINAL CORD INJURY

REACTIONS (2)
  - ADRENAL INSUFFICIENCY [None]
  - ORTHOSTATIC HYPOTENSION [None]
